FAERS Safety Report 4600997-0 (Version None)
Quarter: 2005Q1

REPORT INFORMATION
  Report Type: 
  Country: None (occurrence: None)
  Receive Date: 20050307
  Receipt Date: 20050307
  Transmission Date: 20050727
  Serious: Yes (Other)
  Sender: FDA-Public Use
  Company Number: None

PATIENT
  Age: 3 Year
  Sex: Female
  Weight: 11.3399 kg

DRUGS (1)
  1. GABITRIL [Suspect]
     Indication: IMPULSE-CONTROL DISORDER
     Dosage: CURRENTLY 4 MG BID
     Dates: start: 20040722

REACTIONS (1)
  - EPILEPSY [None]
